FAERS Safety Report 9702036 (Version 2)
Quarter: 2013Q4

REPORT INFORMATION
  Report Type: Spontaneous
  Country: US (occurrence: None)
  Receive Date: 20131119
  Receipt Date: 20131224
  Transmission Date: 20140711
  Serious: Yes (Death, Hospitalization)
  Sender: FDA-Public Use
  Company Number: HYP201310-000065

PATIENT
  Age: 22 Year
  Sex: Male
  Weight: 71.1 kg

DRUGS (8)
  1. RAVICTI [Suspect]
     Indication: AMINO ACID METABOLISM DISORDER
     Route: 048
     Dates: start: 20131018, end: 20131030
  2. RAVICTI [Suspect]
     Indication: AMINO ACID METABOLISM DISORDER
     Route: 048
  3. ZOFRAN [Concomitant]
  4. TYLENOL WITH CODEINE [Concomitant]
  5. BENADRYL [Concomitant]
  6. AMLODIPINE [Concomitant]
  7. CITRULINE [Concomitant]
  8. PREVACID [Concomitant]

REACTIONS (16)
  - Vomiting [None]
  - Fatigue [None]
  - Feeling abnormal [None]
  - Asthenia [None]
  - Abdominal pain [None]
  - Weight decreased [None]
  - Pancreatitis [None]
  - Hyperammonaemia [None]
  - Encephalopathy [None]
  - Confusional state [None]
  - Nausea [None]
  - Decreased appetite [None]
  - Somnolence [None]
  - Dehydration [None]
  - Hepatocellular carcinoma [None]
  - Malignant neoplasm progression [None]
